FAERS Safety Report 19241114 (Version 1)
Quarter: 2021Q2

REPORT INFORMATION
  Report Type: Spontaneous
  Country: US (occurrence: US)
  Receive Date: 20210510
  Receipt Date: 20210510
  Transmission Date: 20210717
  Serious: No
  Sender: FDA-Public Use
  Company Number: None

PATIENT
  Age: 56 Year
  Sex: Female

DRUGS (1)
  1. TALTZ [Suspect]
     Active Substance: IXEKIZUMAB
     Indication: PSORIATIC ARTHROPATHY
     Dosage: OTHER FREQUENCY:EVERY 4 WEEKS ;?
     Route: 058
     Dates: start: 20210113

REACTIONS (3)
  - Drug ineffective [None]
  - Pain [None]
  - Arthritis [None]

NARRATIVE: CASE EVENT DATE: 20210113
